FAERS Safety Report 6387606-8 (Version None)
Quarter: 2009Q4

REPORT INFORMATION
  Report Type: 
  Country: None (occurrence: None)
  Receive Date: 20091005
  Receipt Date: 20090916
  Transmission Date: 20100525
  Serious: Yes (Hospitalization)
  Sender: FDA-Public Use
  Company Number: FR-JNJFOC-20091000651

PATIENT
  Sex: Female

DRUGS (8)
  1. PEPCID DUO [Suspect]
     Route: 048
  2. PEPCID DUO [Suspect]
     Indication: GASTROOESOPHAGEAL REFLUX DISEASE
     Route: 048
  3. BIPERIDYS [Suspect]
     Indication: GASTROOESOPHAGEAL REFLUX DISEASE
  4. INSULIN [Concomitant]
     Indication: TYPE 1 DIABETES MELLITUS
  5. METFORMIN [Concomitant]
     Indication: TYPE 1 DIABETES MELLITUS
  6. GLIMEPIRIDE [Concomitant]
     Indication: TYPE 1 DIABETES MELLITUS
  7. SIMVASTATIN [Concomitant]
  8. TENORDATE [Concomitant]
     Indication: HYPERTENSION

REACTIONS (4)
  - ABDOMINAL PAIN [None]
  - HYPERGLYCAEMIA [None]
  - MUSCLE SPASMS [None]
  - RENAL FAILURE [None]
